FAERS Safety Report 9486908 (Version 3)
Quarter: 2014Q2

REPORT INFORMATION
  Report Type: Spontaneous
  Country: US (occurrence: US)
  Receive Date: 20130829
  Receipt Date: 20140403
  Transmission Date: 20141212
  Serious: Yes (Death)
  Sender: FDA-Public Use
  Company Number: US-BAYER-2013-104131

PATIENT
  Age: 54 Year
  Sex: Female

DRUGS (1)
  1. GADAVIST [Suspect]
     Indication: NUCLEAR MAGNETIC RESONANCE IMAGING SPINAL
     Dosage: UNK
     Dates: start: 20130822, end: 20130822

REACTIONS (4)
  - Hypersensitivity [Fatal]
  - Feeling hot [Fatal]
  - Hypoaesthesia oral [Fatal]
  - Pulse absent [Fatal]
